FAERS Safety Report 17571657 (Version 1)
Quarter: 2020Q1

REPORT INFORMATION
  Report Type: Spontaneous
  Country: US (occurrence: US)
  Receive Date: 20200323
  Receipt Date: 20200323
  Transmission Date: 20200409
  Serious: No
  Sender: FDA-Public Use
  Company Number: US-ITALFARMACO SPA-2081871

PATIENT
  Age: 57 Year
  Sex: Female

DRUGS (7)
  1. MELATONIN [Concomitant]
     Active Substance: MELATONIN
  2. TIGLUTIK [Suspect]
     Active Substance: RILUZOLE
     Indication: AMYOTROPHIC LATERAL SCLEROSIS
     Route: 048
     Dates: start: 20200106
  3. COQ10/UBIDECARENONE [Concomitant]
  4. PROBIOTIC/BIFIDOBACTERIUM LACTIS [Concomitant]
  5. GUAIFENESIN. [Concomitant]
     Active Substance: GUAIFENESIN
  6. RADICAVA [Concomitant]
     Active Substance: EDARAVONE
  7. MIRALAX [Concomitant]
     Active Substance: POLYETHYLENE GLYCOL 3350

REACTIONS (3)
  - Choking [Not Recovered/Not Resolved]
  - Hypoaesthesia oral [Not Recovered/Not Resolved]
  - Cough [Not Recovered/Not Resolved]
